FAERS Safety Report 5924958-4 (Version None)
Quarter: 2008Q3

REPORT INFORMATION
  Report Type: 
  Country: None (occurrence: None)
  Receive Date: 20080909
  Receipt Date: 20080228
  Transmission Date: 20090109
  Serious: Yes (Hospitalization)
  Sender: FDA-Public Use
  Company Number: 163-20785-08021790

PATIENT
  Age: 63 Year
  Sex: Male

DRUGS (32)
  1. THALOMID [Suspect]
     Indication: MULTIPLE MYELOMA
     Dosage: 50 MG, EVERY OTHER DAY, ORAL ; 200 MG, ORAL
     Route: 048
     Dates: start: 20041228
  2. THALOMID [Suspect]
     Indication: MULTIPLE MYELOMA
     Dosage: 50 MG, EVERY OTHER DAY, ORAL ; 200 MG, ORAL
     Route: 048
     Dates: start: 20080211
  3. DEXAMETHASONE TAB [Suspect]
     Indication: MULTIPLE MYELOMA
     Dosage: 12 MG ; 40 MG
     Dates: start: 20041228
  4. DEXAMETHASONE TAB [Suspect]
     Indication: MULTIPLE MYELOMA
     Dosage: 12 MG ; 40 MG
     Dates: start: 20080206
  5. VELCADE [Suspect]
     Indication: MULTIPLE MYELOMA
     Dosage: 0.8 MG/M2 ; 1 MG/M2
     Dates: start: 20041225
  6. VELCADE [Suspect]
     Indication: MULTIPLE MYELOMA
     Dosage: 0.8 MG/M2 ; 1 MG/M2
     Dates: start: 20080206
  7. CISPLATIN [Suspect]
     Indication: MULTIPLE MYELOMA
     Dosage: 7.5 MG/M2 ; 10 MG/M2
     Dates: start: 20041228
  8. CISPLATIN [Suspect]
     Indication: MULTIPLE MYELOMA
     Dosage: 7.5 MG/M2 ; 10 MG/M2
     Dates: start: 20051204
  9. ADRIAMYCIN PFS [Suspect]
     Indication: MULTIPLE MYELOMA
     Dosage: 7.5 MG/M2 ; 10 MG/M2
     Dates: start: 20041228
  10. ADRIAMYCIN PFS [Suspect]
     Indication: MULTIPLE MYELOMA
     Dosage: 7.5 MG/M2 ; 10 MG/M2
     Dates: start: 20051204
  11. CYCLOPHOSPHAMIDE [Suspect]
     Indication: MULTIPLE MYELOMA
     Dosage: 300 MG/M2 ; 400 MG/M2
     Dates: start: 20041228
  12. CYCLOPHOSPHAMIDE [Suspect]
     Indication: MULTIPLE MYELOMA
     Dosage: 300 MG/M2 ; 400 MG/M2
     Dates: start: 20051204
  13. ETOPOSIDE [Suspect]
     Indication: MULTIPLE MYELOMA
     Dosage: 30 MG/M2 ; 40 MG/M2
     Dates: start: 20041228
  14. ETOPOSIDE [Suspect]
     Indication: MULTIPLE MYELOMA
     Dosage: 30 MG/M2 ; 40 MG/M2
     Dates: start: 20051204
  15. MELPHALAN (MELPHALAN) [Suspect]
     Indication: MULTIPLE MYELOMA
     Dosage: 200 MG/M2 ; 200 MG/M2
     Dates: start: 20050302
  16. MELPHALAN (MELPHALAN) [Suspect]
     Indication: MULTIPLE MYELOMA
     Dosage: 200 MG/M2 ; 200 MG/M2
     Dates: start: 20050514
  17. PROSCAR (FINASTERIDE) (TABLETS) [Concomitant]
  18. LIDODERM [Concomitant]
  19. DOCUSATE SODIUM (DOCUSATE SODIUM) (TABLETS) [Concomitant]
  20. AMBIEN CR [Concomitant]
  21. METHADONE (METHADONE) (TABLETS) [Concomitant]
  22. CARDIZEM [Concomitant]
  23. MORPHINE (MORPHINE) (TABLETS) [Concomitant]
  24. KYTRIL (GRANISETRON) (TABLETS) [Concomitant]
  25. HUMALOG [Concomitant]
  26. EFFEXOR [Concomitant]
  27. REMERON [Concomitant]
  28. SUCRALFATE (SUCRALFATE) (TABLETS) [Concomitant]
  29. POTASSIUM CHLORIDE [Concomitant]
  30. PROMETHAZINE (PROMETHAZINE) (TABLETS) [Concomitant]
  31. FOLIC ACID (FOLIC ACID) (TABLETS) [Concomitant]
  32. ADVAIR DISKUS (SERETIDE MITE) [Concomitant]

REACTIONS (1)
  - PNEUMONIA [None]
